FAERS Safety Report 17519833 (Version 1)
Quarter: 2020Q1

REPORT INFORMATION
  Report Type: Spontaneous
  Country: US (occurrence: US)
  Receive Date: 20200306
  Receipt Date: 20200306
  Transmission Date: 20200409
  Serious: Yes (Death)
  Sender: FDA-Public Use
  Company Number: None

PATIENT
  Age: 25 Year
  Sex: Female
  Weight: 68 kg

DRUGS (3)
  1. DUPIXENT [Suspect]
     Active Substance: DUPILUMAB
     Indication: ECZEMA
  2. IMPELLA DEVICE [Suspect]
     Active Substance: DEVICE
  3. MARIJUANA [Suspect]
     Active Substance: CANNABIS SATIVA SUBSP. INDICA TOP

REACTIONS (10)
  - Acute respiratory distress syndrome [None]
  - Pulseless electrical activity [None]
  - Nodal arrhythmia [None]
  - Coagulopathy [None]
  - Vomiting [None]
  - Confusional state [None]
  - Chest pain [None]
  - Immunosuppression [None]
  - Diarrhoea [None]
  - Myocarditis [None]

NARRATIVE: CASE EVENT DATE: 20200304
